FAERS Safety Report 18221424 (Version 1)
Quarter: 2020Q3

REPORT INFORMATION
  Report Type: Spontaneous
  Country: US (occurrence: US)
  Receive Date: 20200902
  Receipt Date: 20200902
  Transmission Date: 20201103
  Serious: Yes (Other)
  Sender: FDA-Public Use
  Company Number: US-PFIZER INC-2020338491

PATIENT
  Age: 66 Year
  Sex: Male

DRUGS (1)
  1. LYRICA [Suspect]
     Active Substance: PREGABALIN
     Dosage: UNK

REACTIONS (5)
  - Pain [Unknown]
  - Pain in extremity [Unknown]
  - Burning sensation [Unknown]
  - Insomnia [Unknown]
  - Neuropathy peripheral [Unknown]
